FAERS Safety Report 25701216 (Version 2)
Quarter: 2025Q3

REPORT INFORMATION
  Report Type: Spontaneous
  Country: CA (occurrence: CA)
  Receive Date: 20250819
  Receipt Date: 20250917
  Transmission Date: 20251021
  Serious: Yes (Hospitalization, Other)
  Sender: PFIZER
  Company Number: CA-PFIZER INC-202500164865

PATIENT
  Age: 32 Year
  Sex: Male

DRUGS (1)
  1. ABRILADA [Suspect]
     Active Substance: ADALIMUMAB-AFZB
     Indication: Crohn^s disease
     Route: 058
     Dates: start: 20250402

REACTIONS (2)
  - Abscess intestinal [Unknown]
  - Intestinal resection [Recovering/Resolving]

NARRATIVE: CASE EVENT DATE: 20250101
